FAERS Safety Report 18367801 (Version 1)
Quarter: 2020Q4

REPORT INFORMATION
  Report Type: Not Available
  Country: US (occurrence: US)
  Receive Date: 20201009
  Receipt Date: 20201009
  Transmission Date: 20210114
  Serious: No
  Sender: FDA-Public Use
  Company Number: US-C B FLEET CO INC-202005-US-001670

PATIENT
  Sex: Female

DRUGS (3)
  1. MONISTAT 3 COMBINATION PACK [Suspect]
     Active Substance: MICONAZOLE NITRATE
     Indication: FUNGAL INFECTION
     Dosage: DOSE UNKNOWN
  2. TOPROL XL [Concomitant]
     Active Substance: METOPROLOL SUCCINATE
  3. XARELTO [Concomitant]
     Active Substance: RIVAROXABAN

REACTIONS (4)
  - Vaginal haemorrhage [Recovered/Resolved]
  - Pyrexia [Recovered/Resolved]
  - Labelled drug-drug interaction medication error [None]
  - Chills [Recovered/Resolved]
